FAERS Safety Report 8022061-3 (Version None)
Quarter: 2012Q1

REPORT INFORMATION
  Report Type: 
  Country: None (occurrence: None)
  Receive Date: 20120104
  Receipt Date: 20111229
  Transmission Date: 20120608
  Serious: Yes (Hospitalization, Other)
  Sender: FDA-Public Use
  Company Number: PHHY2009GB41091

PATIENT
  Sex: Male

DRUGS (3)
  1. CLOZARIL [Suspect]
     Indication: SCHIZOPHRENIA
     Dosage: 400 MG, QD
     Route: 048
     Dates: start: 20020305
  2. DIAZEPAM [Concomitant]
     Dosage: 6 MG, PRN
     Route: 048
  3. PAROXETINE [Concomitant]
     Dosage: 40 MG, UNK
     Route: 048

REACTIONS (10)
  - PLATELET COUNT DECREASED [None]
  - PNEUMONIA ASPIRATION [None]
  - JAUNDICE [None]
  - NEUTROPHIL COUNT INCREASED [None]
  - DYSPHAGIA [None]
  - CHOLELITHIASIS [None]
  - PROSTATIC DISORDER [None]
  - LOWER RESPIRATORY TRACT INFECTION [None]
  - WHITE BLOOD CELL COUNT INCREASED [None]
  - EOSINOPHIL COUNT DECREASED [None]
